FAERS Safety Report 9051235 (Version 1)
Quarter: 2013Q1

REPORT INFORMATION
  Report Type: Spontaneous
  Country: US (occurrence: US)
  Receive Date: 20130206
  Receipt Date: 20130206
  Transmission Date: 20140127
  Serious: Yes (Death, Other)
  Sender: FDA-Public Use
  Company Number: US-ASTELLAS-2012US012772

PATIENT
  Age: 80 Year
  Sex: Male

DRUGS (1)
  1. XTANDI [Suspect]
     Indication: PROSTATE CANCER
     Dosage: 120 MG, UID/QD
     Route: 048
     Dates: start: 20121002, end: 20121215

REACTIONS (3)
  - Incorrect dose administered [Unknown]
  - Acute hepatic failure [Unknown]
  - Neoplasm malignant [Fatal]
